FAERS Safety Report 13531564 (Version 1)
Quarter: 2017Q2

REPORT INFORMATION
  Report Type: Spontaneous
  Country: US (occurrence: US)
  Receive Date: 20170510
  Receipt Date: 20170510
  Transmission Date: 20170830
  Serious: No
  Sender: FDA-Public Use
  Company Number: US-TEVA-761330USA

PATIENT
  Age: 55 Year
  Sex: Female

DRUGS (2)
  1. ACTIQ [Suspect]
     Active Substance: FENTANYL CITRATE
     Indication: RENAL DISORDER
     Route: 065
  2. ACTIQ [Suspect]
     Active Substance: FENTANYL CITRATE
     Indication: BREAKTHROUGH PAIN

REACTIONS (5)
  - Pain [Unknown]
  - Dental caries [Not Recovered/Not Resolved]
  - Dental caries [Unknown]
  - Dry mouth [Not Recovered/Not Resolved]
  - Dental operation [Unknown]
